FAERS Safety Report 17202524 (Version 1)
Quarter: 2019Q4

REPORT INFORMATION
  Report Type: Spontaneous
  Country: US (occurrence: US)
  Receive Date: 20191221
  Receipt Date: 20191221
  Transmission Date: 20200122
  Serious: No
  Sender: FDA-Public Use
  Company Number: None

PATIENT
  Age: 51 Year
  Sex: Female

DRUGS (1)
  1. ENOXAPARIN INJ 60MG/0.6ML [Suspect]
     Active Substance: ENOXAPARIN SODIUM
     Route: 058
     Dates: start: 201911

REACTIONS (3)
  - Injection site bruising [None]
  - Injection site pain [None]
  - Injection site urticaria [None]

NARRATIVE: CASE EVENT DATE: 20191221
